FAERS Safety Report 14404432 (Version 3)
Quarter: 2018Q3

REPORT INFORMATION
  Report Type: Spontaneous
  Country: AR (occurrence: AR)
  Receive Date: 20180117
  Receipt Date: 20180921
  Transmission Date: 20181010
  Serious: Yes (Other)
  Sender: FDA-Public Use
  Company Number: AR-AMGEN-ARGSP2018006441

PATIENT
  Age: 62 Year
  Sex: Female

DRUGS (3)
  1. FOLIC ACID. [Concomitant]
     Active Substance: FOLIC ACID
     Dosage: UNK
  2. ENBREL [Suspect]
     Active Substance: ETANERCEPT
     Indication: RHEUMATOID ARTHRITIS
     Dosage: 50 MG, WEEKLY
     Route: 065
     Dates: start: 20160803, end: 20180107
  3. ARTRAIT [METHOTREXATE SODIUM] [Concomitant]
     Dosage: UNK

REACTIONS (3)
  - Musculoskeletal pain [Recovered/Resolved]
  - Gait disturbance [Unknown]
  - Joint neoplasm [Not Recovered/Not Resolved]

NARRATIVE: CASE EVENT DATE: 2017
